FAERS Safety Report 7285033-2 (Version None)
Quarter: 2011Q1

REPORT INFORMATION
  Report Type: 
  Country: None (occurrence: None)
  Receive Date: 20110210
  Receipt Date: 20110120
  Transmission Date: 20110831
  Serious: No
  Sender: FDA-Public Use
  Company Number: US-B.I. PHARMACEUTICALS,INC./RIDGEFIELD-2011-BP-02100BP

PATIENT
  Sex: Male

DRUGS (6)
  1. TRIAMTERENE [Concomitant]
     Indication: HYPERTENSION
  2. FISH OIL [Concomitant]
     Indication: HYPERTENSION
  3. DILTIAZEM [Concomitant]
     Indication: HYPERTENSION
  4. CELEBREX [Suspect]
     Indication: ARTHRITIS
  5. PRADAXA [Suspect]
     Indication: DEEP VEIN THROMBOSIS
     Dosage: 300 MG
     Route: 048
     Dates: start: 20101101
  6. POTASSIUM [Concomitant]
     Indication: HYPERTENSION

REACTIONS (3)
  - ABDOMINAL PAIN UPPER [None]
  - FREQUENT BOWEL MOVEMENTS [None]
  - HAEMORRHAGE SUBCUTANEOUS [None]
